FAERS Safety Report 9599759 (Version 1)
Quarter: 2013Q4

REPORT INFORMATION
  Report Type: Spontaneous
  Country: US (occurrence: US)
  Receive Date: 20131004
  Receipt Date: 20131004
  Transmission Date: 20140711
  Serious: No
  Sender: FDA-Public Use
  Company Number: US-AMGEN-USASP2013031435

PATIENT
  Age: 60 Year
  Sex: Female

DRUGS (6)
  1. ENBREL [Suspect]
     Indication: RHEUMATOID ARTHRITIS
     Dosage: 50 MG, QWK
     Route: 058
     Dates: start: 201106
  2. METHOTREXATE [Concomitant]
     Dosage: 2.5 MG, UNK
  3. LISINOPRIL HCTZ [Concomitant]
     Dosage: 20-25 MG, UNK
  4. NOVOLOG [Concomitant]
     Dosage: 100 UNIT/ML VIAL, UNK
  5. FOLIC ACID [Concomitant]
     Indication: RHEUMATOID ARTHRITIS
     Dosage: 800 MUG, UNK
  6. ASPIRIN [Concomitant]
     Dosage: 81 MG, UNK

REACTIONS (1)
  - Contusion [Unknown]
